FAERS Safety Report 21745836 (Version 3)
Quarter: 2023Q1

REPORT INFORMATION
  Report Type: Spontaneous
  Country: DE (occurrence: DE)
  Receive Date: 20221219
  Receipt Date: 20230227
  Transmission Date: 20230417
  Serious: Yes (Hospitalization, Other)
  Sender: FDA-Public Use
  Company Number: DE-SA-SAC20221215000245

PATIENT
  Age: 60 Year
  Sex: Female

DRUGS (1)
  1. AUBAGIO [Suspect]
     Active Substance: TERIFLUNOMIDE
     Indication: Multiple sclerosis
     Dosage: 14 MG, QD
     Route: 065
     Dates: start: 201406

REACTIONS (3)
  - Cervical dysplasia [Not Recovered/Not Resolved]
  - Multiple sclerosis relapse [Unknown]
  - Surgery [Unknown]

NARRATIVE: CASE EVENT DATE: 20211124
